FAERS Safety Report 14760075 (Version 1)
Quarter: 2018Q2

REPORT INFORMATION
  Report Type: Spontaneous
  Country: US (occurrence: US)
  Receive Date: 20180413
  Receipt Date: 20180413
  Transmission Date: 20180711
  Serious: No
  Sender: FDA-Public Use
  Company Number: US-TEVA-2018-US-878023

PATIENT
  Sex: Female

DRUGS (1)
  1. ESTRADIOL. [Suspect]
     Active Substance: ESTRADIOL
     Dosage: 1 TABLET EVERY MONDAY FOR WHILE
     Route: 067

REACTIONS (3)
  - Vaginal erosion [Unknown]
  - Pain [Unknown]
  - Vaginal haemorrhage [Unknown]
